FAERS Safety Report 10496670 (Version 2)
Quarter: 2015Q1

REPORT INFORMATION
  Report Type: Spontaneous
  Country: IT (occurrence: IT)
  Receive Date: 20141006
  Receipt Date: 20150216
  Transmission Date: 20150720
  Serious: Yes (Hospitalization)
  Sender: FDA-Public Use
  Company Number: IT-ROCHE-1469030

PATIENT
  Age: 69 Year
  Sex: Female

DRUGS (4)
  1. ZELBORAF [Suspect]
     Active Substance: VEMURAFENIB
     Indication: MALIGNANT MELANOMA
     Route: 048
     Dates: start: 20140430
  2. TRIATEC HCT [Suspect]
     Active Substance: HYDROCHLOROTHIAZIDE\RAMIPRIL
     Indication: HYPERTENSION
     Route: 048
     Dates: start: 20130901, end: 20140907
  3. LACIPIL [Concomitant]
     Active Substance: LACIDIPINE
     Route: 048
  4. TRIATEC HCT [Suspect]
     Active Substance: HYDROCHLOROTHIAZIDE\RAMIPRIL
     Route: 048

REACTIONS (2)
  - Acute kidney injury [Recovered/Resolved]
  - Hepatotoxicity [Recovered/Resolved]

NARRATIVE: CASE EVENT DATE: 20140903
